FAERS Safety Report 19660323 (Version 1)
Quarter: 2021Q3

REPORT INFORMATION
  Report Type: Spontaneous
  Country: US (occurrence: US)
  Receive Date: 20210804
  Receipt Date: 20210804
  Transmission Date: 20211014
  Serious: No
  Sender: FDA-Public Use
  Company Number: None

PATIENT
  Sex: Female
  Weight: 77 kg

DRUGS (2)
  1. LENALIDOMIDE [Suspect]
     Active Substance: LENALIDOMIDE
     Dates: end: 20210415
  2. DARATUMUMAB [Suspect]
     Active Substance: DARATUMUMAB
     Dates: end: 20210326

REACTIONS (3)
  - Urticaria [None]
  - Therapy interrupted [None]
  - Rash maculo-papular [None]

NARRATIVE: CASE EVENT DATE: 20210517
